FAERS Safety Report 4353111-3 (Version None)
Quarter: 2004Q2

REPORT INFORMATION
  Report Type: 
  Country: None (occurrence: None)
  Receive Date: 20040429
  Receipt Date: 20040413
  Transmission Date: 20050107
  Serious: Yes (Hospitalization)
  Sender: FDA-Public Use
  Company Number: 2004AP02184

PATIENT
  Age: 50 Year
  Sex: Female
  Weight: 52 kg

DRUGS (11)
  1. SEROQUEL [Suspect]
     Indication: SCHIZOPHRENIA
     Dosage: 200 MG DAILY PO
     Route: 048
     Dates: start: 20040113, end: 20040120
  2. SEROQUEL [Suspect]
     Indication: SCHIZOPHRENIA
     Dosage: 200 MG DAILY PO
     Route: 048
     Dates: start: 20040130, end: 20040204
  3. SEROQUEL [Suspect]
     Indication: SCHIZOPHRENIA
     Dosage: 500 MG DAILY PO
     Route: 048
     Dates: start: 20040205, end: 20040218
  4. SEROQUEL [Suspect]
     Indication: SCHIZOPHRENIA
     Dosage: 200 MG TID PO
     Route: 048
     Dates: start: 20040219
  5. LODOPIN [Concomitant]
  6. BARNETIL [Concomitant]
  7. NEULEPTIL [Concomitant]
  8. LINTON [Concomitant]
  9. FERROMIA [Concomitant]
  10. ARTANE [Concomitant]
  11. VALERIN [Concomitant]

REACTIONS (7)
  - ANO-RECTAL STENOSIS [None]
  - APHTHOUS STOMATITIS [None]
  - COLITIS ULCERATIVE [None]
  - ILEUS [None]
  - MEGACOLON ACQUIRED [None]
  - RECTAL HAEMORRHAGE [None]
  - SUBILEUS [None]
